FAERS Safety Report 13049508 (Version 1)
Quarter: 2016Q4

REPORT INFORMATION
  Report Type: Spontaneous
  Country: NC (occurrence: NC)
  Receive Date: 20161221
  Receipt Date: 20161221
  Transmission Date: 20170207
  Serious: No
  Sender: FDA-Public Use
  Company Number: None

PATIENT
  Age: 9 Year
  Sex: Female
  Weight: 45 kg

DRUGS (1)
  1. BENZO-JEL [Suspect]
     Active Substance: BENZOCAINE
     Indication: DENTAL CARIES
     Dosage: A PEA-SIZED AMOUNT WAS APPLIED ONCE, PRIOR TO DENTAL CARE ON THE GUM (AND THEN ON THE SKIN VIA THE GLOVE)
     Route: 061
     Dates: start: 20151223, end: 20151223

REACTIONS (5)
  - Skin swelling [None]
  - Skin reaction [None]
  - Scar [None]
  - Erythema [None]
  - Thermal burn [None]

NARRATIVE: CASE EVENT DATE: 20151223
